FAERS Safety Report 18604452 (Version 2)
Quarter: 2020Q4

REPORT INFORMATION
  Report Type: Report from Study
  Country: FR (occurrence: FR)
  Receive Date: 20201211
  Receipt Date: 20201218
  Transmission Date: 20210114
  Serious: Yes (Hospitalization, Other)
  Sender: FDA-Public Use
  Company Number: NVSC2020FR326134

PATIENT
  Age: 12 Month
  Sex: Female
  Weight: 9.5 kg

DRUGS (5)
  1. SOLUPRED [Concomitant]
     Dosage: 1 MG/KG
     Route: 048
     Dates: start: 20201203
  2. SOLU-MEDROL [Concomitant]
     Active Substance: METHYLPREDNISOLONE SODIUM SUCCINATE
     Indication: PRODUCT USED FOR UNKNOWN INDICATION
     Dosage: 2 MG/KG
     Route: 042
     Dates: start: 20201129, end: 20201202
  3. SOLUPRED [Concomitant]
     Indication: PRODUCT USED FOR UNKNOWN INDICATION
     Dosage: 10 MG (1MG/KG)
     Route: 048
     Dates: start: 20201123, end: 20201128
  4. SOLUPRED [Concomitant]
     Dosage: 2 MG/KG
     Route: 065
     Dates: start: 20201129, end: 20201202
  5. ZOLGENSMA [Suspect]
     Active Substance: ONASEMNOGENE ABEPARVOVEC-XIOI
     Indication: SPINAL MUSCULAR ATROPHY
     Dosage: 52.5 ML (105X1013 COPIES)
     Route: 042
     Dates: start: 20201124

REACTIONS (14)
  - Red blood cell count increased [Unknown]
  - Blood creatinine decreased [Unknown]
  - Vomiting [Recovering/Resolving]
  - Escherichia test positive [Recovering/Resolving]
  - Decreased appetite [Recovering/Resolving]
  - Nausea [Unknown]
  - Cell death [Recovering/Resolving]
  - Blood lactate dehydrogenase increased [Recovering/Resolving]
  - Thrombotic microangiopathy [Unknown]
  - Mean cell haemoglobin concentration increased [Unknown]
  - Pyrexia [Recovering/Resolving]
  - Platelet count decreased [Recovering/Resolving]
  - Transaminases increased [Recovering/Resolving]
  - Monocyte count increased [Unknown]

NARRATIVE: CASE EVENT DATE: 20201127
